FAERS Safety Report 8367285-0 (Version None)
Quarter: 2012Q2

REPORT INFORMATION
  Report Type: 
  Country: None (occurrence: None)
  Receive Date: 20120517
  Receipt Date: 20120516
  Transmission Date: 20120825
  Serious: Yes (Other)
  Sender: FDA-Public Use
  Company Number: PHHY2012CZ038034

PATIENT
  Sex: Female

DRUGS (2)
  1. ZOMETA [Suspect]
     Indication: METASTASES TO BONE
     Dosage: UNK UKN, UNK
     Dates: start: 20071005
  2. NSAID'S [Concomitant]

REACTIONS (8)
  - MALAISE [None]
  - DRY MOUTH [None]
  - MOUTH HAEMORRHAGE [None]
  - OSTEONECROSIS OF JAW [None]
  - PAIN [None]
  - BONE PAIN [None]
  - DYSGEUSIA [None]
  - DYSPHAGIA [None]
